FAERS Safety Report 8396250-2 (Version None)
Quarter: 2012Q2

REPORT INFORMATION
  Report Type: 
  Country: None (occurrence: None)
  Receive Date: 20120530
  Receipt Date: 20120517
  Transmission Date: 20120825
  Serious: Yes (Hospitalization, Other)
  Sender: FDA-Public Use
  Company Number: IT-ROCHE-1043768

PATIENT
  Age: 48 Year
  Sex: Female
  Weight: 85 kg

DRUGS (5)
  1. DEXAMETHASONE SODIUM PHOSPHATE [Concomitant]
     Dates: start: 20120401
  2. VEMURAFENIB [Suspect]
     Indication: MALIGNANT MELANOMA
     Route: 048
     Dates: start: 20120119, end: 20120223
  3. VEMURAFENIB [Suspect]
     Dates: start: 20120312
  4. VEMURAFENIB [Suspect]
     Route: 048
     Dates: end: 20120411
  5. VEMURAFENIB [Suspect]
     Route: 048
     Dates: start: 20120418

REACTIONS (4)
  - GASTROENTERITIS [None]
  - PYREXIA [None]
  - DIARRHOEA [None]
  - TOXICITY TO VARIOUS AGENTS [None]
